FAERS Safety Report 7799281-6 (Version None)
Quarter: 2011Q4

REPORT INFORMATION
  Report Type: 
  Country: None (occurrence: None)
  Receive Date: 20111006
  Receipt Date: 20110930
  Transmission Date: 20120403
  Serious: Yes (Other)
  Sender: FDA-Public Use
  Company Number: BR-SANOFI-AVENTIS-2011SA064495

PATIENT
  Age: 50 Year
  Sex: Female
  Weight: 55 kg

DRUGS (2)
  1. ALLEGRA [Suspect]
     Route: 065
  2. DICLOFENAC SODIUM [Interacting]
     Route: 065

REACTIONS (9)
  - LOSS OF CONSCIOUSNESS [None]
  - DIARRHOEA [None]
  - ERYTHEMA [None]
  - PRURITUS [None]
  - TONGUE OEDEMA [None]
  - ABDOMINAL PAIN [None]
  - DRUG INTERACTION [None]
  - HYPERHIDROSIS [None]
  - HYPERSENSITIVITY [None]
